FAERS Safety Report 9606218 (Version 2)
Quarter: 2013Q4

REPORT INFORMATION
  Report Type: Spontaneous
  Country: US (occurrence: US)
  Receive Date: 20131008
  Receipt Date: 20131008
  Transmission Date: 20140711
  Serious: No
  Sender: FDA-Public Use
  Company Number: US-AMGEN-USASP2013043633

PATIENT
  Age: 70 Year
  Sex: Female

DRUGS (8)
  1. PROLIA [Suspect]
     Indication: OSTEOPENIA
     Dosage: 60 MG, Q6MO
     Dates: start: 20130507
  2. ANTIHYPERTENSIVES [Concomitant]
  3. VIACTIV                            /00751501/ [Concomitant]
  4. POTASSIUM [Concomitant]
  5. VITAMIN D                          /00107901/ [Concomitant]
  6. VITAMIN C                          /00008001/ [Concomitant]
  7. LUTEIN                             /01638501/ [Concomitant]
  8. CENTRUM SILVER                     /02363801/ [Concomitant]

REACTIONS (2)
  - Headache [Recovered/Resolved]
  - Malaise [Recovered/Resolved]
